FAERS Safety Report 6385932-X (Version None)
Quarter: 2009Q3

REPORT INFORMATION
  Report Type: 
  Country: None (occurrence: None)
  Receive Date: 20090929
  Receipt Date: 20080911
  Transmission Date: 20100115
  Serious: Yes (Other)
  Sender: FDA-Public Use
  Company Number: 14308050

PATIENT
  Age: 60 Year
  Sex: Male
  Weight: 93 kg

DRUGS (8)
  1. DEFINITY [Suspect]
     Indication: ECHOCARDIOGRAM
     Dosage: INTRAVENOUS
     Route: 042
     Dates: start: 20080820
  2. ASPIRIN [Concomitant]
  3. ASCORBIC ACID [Concomitant]
  4. MULTI-VITAMIN [Concomitant]
  5. GEMFIBROZIL [Concomitant]
  6. WELLBUTRIN [Concomitant]
  7. LIPITOR [Concomitant]
  8. MAXIDEX [Concomitant]

REACTIONS (7)
  - CHEST PAIN [None]
  - EYE PRURITUS [None]
  - EYELID OEDEMA [None]
  - FLUSHING [None]
  - OCULAR HYPERAEMIA [None]
  - THROAT TIGHTNESS [None]
  - URTICARIA [None]
